FAERS Safety Report 4977695-7 (Version None)
Quarter: 2006Q2

REPORT INFORMATION
  Report Type: 
  Country: None (occurrence: None)
  Receive Date: 20060420
  Receipt Date: 20051214
  Transmission Date: 20061013
  Serious: No
  Sender: FDA-Public Use
  Company Number: US-GLAXOSMITHKLINE-A0585871A

PATIENT
  Age: 56 Year
  Sex: Female

DRUGS (6)
  1. ESKALITH [Suspect]
     Dosage: 450MG TWICE PER DAY
     Route: 048
  2. WELLBUTRIN [Suspect]
     Indication: DEPRESSION
     Dosage: 200MG PER DAY
     Route: 048
  3. EVISTA [Concomitant]
  4. BUSPIRONE [Concomitant]
  5. GABAPENTIN [Concomitant]
  6. CYMBALTA [Concomitant]

REACTIONS (1)
  - TINNITUS [None]
